FAERS Safety Report 13230154 (Version 1)
Quarter: 2017Q1

REPORT INFORMATION
  Report Type: Spontaneous
  Country: HR (occurrence: HR)
  Receive Date: 20170214
  Receipt Date: 20170214
  Transmission Date: 20170428
  Serious: Yes (Other)
  Sender: FDA-Public Use
  Company Number: HR-TEVA-738368ACC

PATIENT
  Sex: Male

DRUGS (1)
  1. ZIPANTOLA [Suspect]
     Active Substance: PANTOPRAZOLE SODIUM
     Indication: GASTRITIS
     Route: 048

REACTIONS (7)
  - Anal incontinence [Unknown]
  - Decreased appetite [Unknown]
  - Blood urine present [Unknown]
  - Asthenia [Unknown]
  - Chills [Unknown]
  - Diarrhoea [Unknown]
  - Haematochezia [Unknown]

NARRATIVE: CASE EVENT DATE: 201701
